FAERS Safety Report 7659967-0 (Version None)
Quarter: 2011Q3

REPORT INFORMATION
  Report Type: 
  Country: None (occurrence: None)
  Receive Date: 20110805
  Receipt Date: 20110728
  Transmission Date: 20111222
  Serious: Yes (Hospitalization, Other)
  Sender: FDA-Public Use
  Company Number: FR-BRISTOL-MYERS SQUIBB COMPANY-15935471

PATIENT
  Age: 77 Year
  Sex: Female

DRUGS (11)
  1. AMLODIPINE BESYLATE [Concomitant]
  2. ALEPSAL [Concomitant]
  3. FLUOXETINE [Concomitant]
  4. BISOPROLOL FUMARATE [Concomitant]
  5. PREDNISONE [Concomitant]
  6. COUMADIN [Suspect]
     Indication: ATRIAL FIBRILLATION
  7. FOLIC ACID [Concomitant]
  8. PREDNISONE [Concomitant]
  9. FERROUS SULFATE TAB [Concomitant]
  10. NEXIUM [Concomitant]
  11. BETAMETHASONE VALERATE [Concomitant]

REACTIONS (2)
  - ANAEMIA [None]
  - DUODENAL ULCER [None]
